FAERS Safety Report 4415077-7 (Version None)
Quarter: 2004Q3

REPORT INFORMATION
  Report Type: 
  Country: None (occurrence: None)
  Receive Date: 20040804
  Receipt Date: 20040726
  Transmission Date: 20050211
  Serious: Yes (Other)
  Sender: FDA-Public Use
  Company Number: 200417425GDDC

PATIENT
  Age: 71 Year
  Sex: 0

DRUGS (1)
  1. TRENTAL [Suspect]
     Indication: MEMORY IMPAIRMENT
     Dosage: DOSE: UNK
     Route: 048

REACTIONS (2)
  - EYE DISORDER [None]
  - RETINAL DETACHMENT [None]
